FAERS Safety Report 8797197 (Version 2)
Quarter: 2015Q1

REPORT INFORMATION
  Report Type: Report from Study
  Country: US (occurrence: US)
  Receive Date: 20120919
  Receipt Date: 20150304
  Transmission Date: 20150721
  Serious: Yes (Death)
  Sender: FDA-Public Use
  Company Number: US-ROCHE-1102291

PATIENT
  Age: 48 Year
  Sex: Female

DRUGS (5)
  1. AVASTIN [Suspect]
     Active Substance: BEVACIZUMAB
     Indication: LUNG NEOPLASM MALIGNANT
     Route: 042
     Dates: start: 20080917
  2. CARBOPLATIN. [Concomitant]
     Active Substance: CARBOPLATIN
  3. PROCRIT [Concomitant]
     Active Substance: ERYTHROPOIETIN
     Route: 065
  4. NEULASTA [Concomitant]
     Active Substance: PEGFILGRASTIM
     Route: 065
  5. TAXOL [Concomitant]
     Active Substance: PACLITAXEL

REACTIONS (11)
  - Pulmonary embolism [Unknown]
  - Decreased appetite [Unknown]
  - Weight decreased [Unknown]
  - Anaemia [Unknown]
  - Vomiting [Unknown]
  - Constipation [Recovered/Resolved]
  - Necrosis [Unknown]
  - Death [Fatal]
  - Musculoskeletal chest pain [Unknown]
  - Cholelithiasis [Unknown]
  - Nausea [Unknown]

NARRATIVE: CASE EVENT DATE: 20090116
